FAERS Safety Report 22014672 (Version 1)
Quarter: 2023Q1

REPORT INFORMATION
  Report Type: Spontaneous
  Country: US (occurrence: US)
  Receive Date: 20230221
  Receipt Date: 20230221
  Transmission Date: 20230418
  Serious: No
  Sender: FDA-Public Use
  Company Number: US-LUPIN PHARMACEUTICALS INC.-2023-01213

PATIENT

DRUGS (5)
  1. QUETIAPINE FUMARATE [Interacting]
     Active Substance: QUETIAPINE FUMARATE
     Indication: Product used for unknown indication
     Dosage: 1 DOSAGE FORM, QD
     Route: 065
  2. QUETIAPINE [Interacting]
     Active Substance: QUETIAPINE
     Indication: Product used for unknown indication
     Dosage: UNK UNK, QD (AT BEDTIME)
     Route: 065
  3. QUETIAPINE [Interacting]
     Active Substance: QUETIAPINE
     Dosage: 2 DOSAGE FORM, QD
     Route: 065
  4. POLYETHYLENE GLYCOL [Interacting]
     Active Substance: POLYETHYLENE GLYCOL
     Indication: Laxative supportive care
     Dosage: UNK
     Route: 065
  5. QUETIAPINE [Concomitant]
     Active Substance: QUETIAPINE
     Indication: Product used for unknown indication
     Dosage: 1 DOSAGE FORM, QD
     Route: 065

REACTIONS (4)
  - Mania [Unknown]
  - Incorrect dose administered [Unknown]
  - Drug interaction [Unknown]
  - Inhibitory drug interaction [Unknown]
